FAERS Safety Report 6859154-X (Version None)
Quarter: 2010Q3

REPORT INFORMATION
  Report Type: 
  Country: None (occurrence: None)
  Receive Date: 20100719
  Receipt Date: 20080221
  Transmission Date: 20110219
  Serious: No
  Sender: FDA-Public Use
  Company Number: US-PFIZER INC-2008018834

PATIENT
  Sex: Male
  Weight: 136.4 kg

DRUGS (6)
  1. CHANTIX [Suspect]
     Indication: SMOKING CESSATION THERAPY
     Dates: start: 20080101
  2. ACCUPRIL [Concomitant]
  3. COREG [Concomitant]
  4. METFORMIN HCL [Concomitant]
  5. ALBUTEROL [Concomitant]
  6. OTHER RESPIRATORY SYSTEM PRODUCTS [Concomitant]

REACTIONS (1)
  - BLOOD PRESSURE INCREASED [None]
